FAERS Safety Report 12157188 (Version 1)
Quarter: 2016Q1

REPORT INFORMATION
  Report Type: Report from Study
  Country: BR (occurrence: BR)
  Receive Date: 20160308
  Receipt Date: 20160308
  Transmission Date: 20160526
  Serious: Yes (Hospitalization)
  Sender: FDA-Public Use
  Company Number: BR-ROCHE-1720185

PATIENT
  Age: 69 Year
  Sex: Female
  Weight: 80 kg

DRUGS (5)
  1. BESEROL (ACETAMINOPHEN\CAFFEINE\CARISOPRODOL\DICLOFENAC SODIUM) [Suspect]
     Active Substance: ACETAMINOPHEN\CAFFEINE\CARISOPRODOL\DICLOFENAC SODIUM
     Indication: PRODUCT USED FOR UNKNOWN INDICATION
     Route: 065
  2. LISADOR [Concomitant]
     Active Substance: DIPYRONE\PROMETHAZINE HYDROCHLORIDE
     Indication: PAIN
     Route: 065
  3. DIPYRONE [Concomitant]
     Active Substance: DIPYRONE
     Route: 065
  4. ACTEMRA [Suspect]
     Active Substance: TOCILIZUMAB
     Indication: RHEUMATOID ARTHRITIS
     Route: 065
     Dates: start: 20140401
  5. NATRILIX [Concomitant]
     Active Substance: INDAPAMIDE
     Route: 065

REACTIONS (8)
  - Arthropathy [Recovering/Resolving]
  - Spinal disorder [Unknown]
  - Hepatic steatosis [Not Recovered/Not Resolved]
  - Bladder pain [Unknown]
  - Renal disorder [Unknown]
  - Blood cholesterol increased [Not Recovered/Not Resolved]
  - Hypertension [Unknown]
  - Body height decreased [Unknown]

NARRATIVE: CASE EVENT DATE: 201602
